FAERS Safety Report 7237298-0 (Version None)
Quarter: 2011Q1

REPORT INFORMATION
  Report Type: 
  Country: None (occurrence: None)
  Receive Date: 20110121
  Receipt Date: 20110113
  Transmission Date: 20110831
  Serious: Yes (Other)
  Sender: FDA-Public Use
  Company Number: BR-AMGEN-BRACT2011002889

PATIENT

DRUGS (2)
  1. TANDRILAX [Concomitant]
     Dosage: [CAFFEINE 30MG, CARISOPRODOL 125MG, DICLOFENAC SODIUM 50MG, PARACETAMOL 300MG] ONE TABLET DAILY
  2. ETANERCEPT [Suspect]
     Indication: ANKYLOSING SPONDYLITIS
     Dosage: 25 MG, 2 TIMES/WK (TUESDAYS AND FRIDAYS)
     Route: 058
     Dates: start: 20070101

REACTIONS (2)
  - UVEITIS [None]
  - VISUAL IMPAIRMENT [None]
